FAERS Safety Report 5194663-3 (Version None)
Quarter: 2006Q4

REPORT INFORMATION
  Report Type: 
  Country: None (occurrence: None)
  Receive Date: 20061229
  Receipt Date: 20061220
  Transmission Date: 20070319
  Serious: Yes (Hospitalization)
  Sender: FDA-Public Use
  Company Number: JP-JNJFOC-20061205597

PATIENT
  Age: 73 Year
  Sex: Male

DRUGS (7)
  1. ITRIZOLE [Suspect]
     Indication: NAIL TINEA
     Dosage: PULSE THERAPY
     Route: 048
     Dates: start: 20061109, end: 20061111
  2. ADALAT [Interacting]
     Indication: DRUG USE FOR UNKNOWN INDICATION
     Route: 048
  3. ADALAT [Interacting]
     Indication: HYPERCALCAEMIA
     Route: 048
  4. DIOVAN [Concomitant]
     Indication: DRUG USE FOR UNKNOWN INDICATION
     Route: 048
  5. CARDENALIN [Concomitant]
     Indication: DRUG USE FOR UNKNOWN INDICATION
     Route: 048
  6. ALDACTONE [Concomitant]
     Indication: DRUG USE FOR UNKNOWN INDICATION
     Route: 048
  7. LIPIDIL [Concomitant]
     Indication: DRUG USE FOR UNKNOWN INDICATION
     Route: 048

REACTIONS (4)
  - ANURIA [None]
  - BLOOD PRESSURE DECREASED [None]
  - DRUG INTERACTION [None]
  - OEDEMA PERIPHERAL [None]
